FAERS Safety Report 7938302-4 (Version None)
Quarter: 2011Q4

REPORT INFORMATION
  Report Type: 
  Country: None (occurrence: None)
  Receive Date: 20111123
  Receipt Date: 20111118
  Transmission Date: 20120403
  Serious: Yes (Life-Threatening, Other)
  Sender: FDA-Public Use
  Company Number: US-BAYER-2011-032064

PATIENT
  Age: 48 Year
  Sex: Female
  Weight: 58.05 kg

DRUGS (10)
  1. BONIVA [Concomitant]
     Indication: OSTEOPENIA
     Dosage: UNK
     Dates: start: 20090101, end: 20100101
  2. CALTRATE [CALCIUM CARBONATE] [Concomitant]
     Indication: SKELETAL INJURY
     Dosage: UNK UNK, QD
  3. SINGULAIR [Concomitant]
     Indication: ASTHMA
     Dosage: UNK
     Dates: start: 20010101
  4. SYMBICORT [Concomitant]
     Indication: ASTHMA
     Dosage: UNK
     Dates: start: 20010101
  5. ALLEGRA [Concomitant]
     Indication: MULTIPLE ALLERGIES
     Dosage: UNK
     Dates: start: 20010101
  6. NASONEX [Concomitant]
     Indication: MULTIPLE ALLERGIES
     Dosage: UNK
     Dates: start: 20010101
  7. PANTOPRAZOLE [Concomitant]
     Indication: GASTROOESOPHAGEAL REFLUX DISEASE
     Dosage: UNK
     Dates: start: 20090101, end: 20100101
  8. YAZ [Suspect]
     Indication: MENSTRUATION IRREGULAR
  9. YAZ [Suspect]
     Indication: PREMENSTRUAL SYNDROME
     Dosage: UNK
     Dates: start: 20090724, end: 20091201
  10. MULTI-VITAMIN [Concomitant]
     Indication: GENERAL PHYSICAL HEALTH DETERIORATION
     Dosage: UNK UNK, QD

REACTIONS (7)
  - CEREBROVASCULAR ACCIDENT [None]
  - PAIN [None]
  - DEEP VEIN THROMBOSIS [None]
  - OEDEMA PERIPHERAL [None]
  - PAIN IN EXTREMITY [None]
  - ERYTHEMA [None]
  - INJURY [None]
